FAERS Safety Report 16156948 (Version 2)
Quarter: 2020Q2

REPORT INFORMATION
  Report Type: Spontaneous
  Country: US (occurrence: US)
  Receive Date: 20190404
  Receipt Date: 20200401
  Transmission Date: 20200713
  Serious: Yes (Other)
  Sender: FDA-Public Use
  Company Number: US-ABBVIE-19S-163-2725770-00

PATIENT
  Sex: Female

DRUGS (1)
  1. CREON [Suspect]
     Active Substance: PANCRELIPASE AMYLASE\PANCRELIPASE LIPASE\PANCRELIPASE PROTEASE
     Indication: PRODUCT USED FOR UNKNOWN INDICATION
     Route: 048

REACTIONS (8)
  - Pancreatic failure [Unknown]
  - Glycosylated haemoglobin increased [Unknown]
  - Uterine leiomyoma [Unknown]
  - Immunodeficiency [Unknown]
  - Diabetes mellitus inadequate control [Unknown]
  - Oropharyngeal pain [Unknown]
  - Cough [Unknown]
  - Hypersensitivity [Unknown]
